FAERS Safety Report 5565780-0 (Version None)
Quarter: 2007Q4

REPORT INFORMATION
  Report Type: 
  Country: None (occurrence: None)
  Receive Date: 20071213
  Receipt Date: 20071130
  Transmission Date: 20080405
  Serious: Yes (Hospitalization)
  Sender: FDA-Public Use
  Company Number: S07-USA-06167-01

PATIENT
  Age: 86 Year
  Sex: Female
  Weight: 54.8852 kg

DRUGS (9)
  1. CAMPRAL [Suspect]
     Indication: ALCOHOL USE
     Dosage: 333 MG QD PO
     Route: 048
     Dates: start: 20070914, end: 20070917
  2. ATIVAN [Suspect]
     Dosage: 0.5 MG PO
     Route: 048
     Dates: start: 20070914
  3. ASPIRIN [Concomitant]
  4. ARICEPT [Concomitant]
  5. LEXAPRO [Concomitant]
  6. NAMENDA [Concomitant]
  7. TOPROL-XL [Concomitant]
  8. ZOCOR [Concomitant]
  9. AMBIEN [Concomitant]

REACTIONS (2)
  - ANGIOEDEMA [None]
  - SOMNOLENCE [None]
